FAERS Safety Report 21232538 (Version 1)
Quarter: 2022Q3

REPORT INFORMATION
  Report Type: Spontaneous
  Country: US (occurrence: US)
  Receive Date: 20220819
  Receipt Date: 20220819
  Transmission Date: 20221026
  Serious: Yes (Other)
  Sender: FDA-Public Use
  Company Number: US-PFIZER INC-PV202200044999

PATIENT
  Age: 56 Year
  Sex: Female

DRUGS (1)
  1. XELJANZ XR [Suspect]
     Active Substance: TOFACITINIB CITRATE
     Dosage: UNK

REACTIONS (7)
  - Gallbladder operation [Unknown]
  - Haemorrhage [Unknown]
  - Product dose omission issue [Unknown]
  - Arthritis [Unknown]
  - Psoriasis [Unknown]
  - Blood test abnormal [Unknown]
  - Skin fissures [Unknown]
